FAERS Safety Report 24789866 (Version 1)
Quarter: 2024Q4

REPORT INFORMATION
  Report Type: Spontaneous
  Country: US (occurrence: None)
  Receive Date: 20241230
  Receipt Date: 20241230
  Transmission Date: 20250114
  Serious: Yes (Other)
  Sender: Public
  Company Number: None

PATIENT
  Age: 61 Year
  Sex: Female
  Weight: 99 kg

DRUGS (18)
  1. CLINDAMYCIN HYDROCHLORIDE [Suspect]
     Active Substance: CLINDAMYCIN HYDROCHLORIDE
     Indication: Skin infection
     Dosage: OTHER QUANTITY : 300 TABLET(S);?FREQUENCY : 3 TIMES A DAY;?
     Route: 048
     Dates: start: 20241213, end: 20241222
  2. LEVOFLOXACIN [Suspect]
     Active Substance: LEVOFLOXACIN
     Indication: Skin infection
     Dosage: OTHER QUANTITY : 1 TABLET(S);?
     Route: 048
     Dates: start: 20241217, end: 20241226
  3. Dexcom 6 [Concomitant]
  4. ATORVASTATIN [Concomitant]
     Active Substance: ATORVASTATIN
  5. Fiasp FlexTouch U-100 Insulin 100 unit/mL [Concomitant]
  6. metformin 500 mg 24 hr tablet; [Concomitant]
  7. fluticasone propion-salmeteroL 250-50 mcg/dose DISKUS; [Concomitant]
  8. MONTELUKAST SODIUM [Concomitant]
     Active Substance: MONTELUKAST\MONTELUKAST SODIUM
  9. albuterol HFA 90 [Concomitant]
  10. Alpha Lipoic Acid + Acetyl L-Carnitine HC; [Concomitant]
  11. NM-6603 [Concomitant]
     Active Substance: NM-6603
  12. METHYLCOBALAMIN [Concomitant]
     Active Substance: METHYLCOBALAMIN
  13. Omega-3 Fish Oil-Lemon [Concomitant]
  14. Probiotic 10-20 [Concomitant]
  15. Ultra Vitamin K [Concomitant]
  16. Advanced K2 Complex [Concomitant]
  17. Chelated Zinc - Albion? Zinc [Concomitant]
  18. Glycinate Chelate [Concomitant]

REACTIONS (7)
  - Faeces discoloured [None]
  - Vision blurred [None]
  - Headache [None]
  - Back pain [None]
  - Pain [None]
  - Vaginal discharge [None]
  - Sleep disorder [None]

NARRATIVE: CASE EVENT DATE: 20241224
